FAERS Safety Report 8218561-3 (Version None)
Quarter: 2012Q1

REPORT INFORMATION
  Report Type: 
  Country: None (occurrence: None)
  Receive Date: 20120319
  Receipt Date: 20120302
  Transmission Date: 20120608
  Serious: Yes (Death, Other)
  Sender: FDA-Public Use
  Company Number: US-JNJFOC-20120307912

PATIENT
  Sex: Male

DRUGS (6)
  1. ASPIRIN [Suspect]
     Indication: COMPLETED SUICIDE
     Route: 065
  2. MORPHINE [Suspect]
     Indication: COMPLETED SUICIDE
     Route: 048
  3. CETIRIZINE HYDROCHLORIDE [Suspect]
     Route: 065
  4. HYDROXYZINE PAMOATE [Suspect]
     Indication: COMPLETED SUICIDE
     Route: 065
  5. CETIRIZINE HYDROCHLORIDE [Suspect]
     Indication: COMPLETED SUICIDE
     Route: 065
  6. GABAPENTIN [Suspect]
     Indication: COMPLETED SUICIDE
     Route: 048

REACTIONS (4)
  - CARDIAC ARREST [None]
  - COMPLETED SUICIDE [None]
  - CONVULSION [None]
  - TOXICITY TO VARIOUS AGENTS [None]
